FAERS Safety Report 9624617 (Version 6)
Quarter: 2014Q1

REPORT INFORMATION
  Report Type: Spontaneous
  Country: US (occurrence: US)
  Receive Date: 20131015
  Receipt Date: 20140129
  Transmission Date: 20141002
  Serious: Yes (Other)
  Sender: FDA-Public Use
  Company Number: US-PFIZER INC-2013294594

PATIENT
  Age: 79 Year
  Sex: Female
  Weight: 31.75 kg

DRUGS (4)
  1. ACCURETIC [Suspect]
     Indication: HYPERTENSION
     Dosage: [QUINAPRIL HCL 20 MG]/ [HYDROCHLOROTHIAZIDE 12.5 MG], DAILY
     Route: 048
     Dates: start: 2008
  2. LIPITOR [Suspect]
     Indication: BLOOD CHOLESTEROL INCREASED
     Dosage: 20 MG, DAILY
     Route: 048
     Dates: start: 2008
  3. ARTHROTEC [Suspect]
     Indication: ARTHRITIS
     Dosage: [DICLOFENAC 75 MG]/[MISOPROSTOL 200 MCG], 1X/DAY
     Route: 048
     Dates: start: 2008, end: 20130716
  4. ZITHROMAX [Suspect]
     Dosage: 500, UNK

REACTIONS (3)
  - Breast cancer female [Unknown]
  - Arthropathy [Unknown]
  - Tooth infection [Unknown]
